FAERS Safety Report 4588472-3 (Version None)
Quarter: 2005Q1

REPORT INFORMATION
  Report Type: 
  Country: None (occurrence: None)
  Receive Date: 20050222
  Receipt Date: 20050209
  Transmission Date: 20050727
  Serious: Yes (Hospitalization)
  Sender: FDA-Public Use
  Company Number: FR-BRISTOL-MYERS SQUIBB COMPANY-12857538

PATIENT
  Age: 30 Month
  Sex: Female

DRUGS (1)
  1. MUCOMYST [Suspect]
     Dosage: 100 MG/5 ML POWDER FOR ORAL SUSPENSION - TOOK 2/3 OF THE BOTTLE
     Route: 048
     Dates: start: 20050209, end: 20050209

REACTIONS (3)
  - ABDOMINAL PAIN [None]
  - ACCIDENTAL OVERDOSE [None]
  - MEDICATION ERROR [None]
